FAERS Safety Report 8867086 (Version 1)
Quarter: 2012Q4

REPORT INFORMATION
  Report Type: 
  Country: US (occurrence: US)
  Receive Date: 20121025
  Receipt Date: 20121025
  Transmission Date: 20130627
  Serious: No
  Sender: FDA-Public Use
  Company Number: US-AMGEN-USASP2012014603

PATIENT
  Sex: Female

DRUGS (8)
  1. ENBREL [Suspect]
     Indication: PRODUCT USED FOR UNKNOWN INDICATION
     Dosage: 50 mg, qwk
  2. KLONOPIN [Concomitant]
     Dosage: 1 mg, UNK
  3. FIORICET [Concomitant]
  4. WELLBUTRIN [Concomitant]
     Dosage: 75 mg, UNK
  5. VITAMIN D3 [Concomitant]
  6. OMEGA 3                            /01334101/ [Concomitant]
     Dosage: 1000 mg, UNK
  7. MULTIVITAMIN                       /00097801/ [Concomitant]
  8. SIMVASTATIN [Concomitant]
     Dosage: 10 mg, UNK

REACTIONS (1)
  - Nasopharyngitis [Unknown]
